FAERS Safety Report 7943386 (Version 3)
Quarter: 2014Q1

REPORT INFORMATION
  Report Type: Spontaneous
  Country: US (occurrence: US)
  Receive Date: 20110513
  Receipt Date: 20140219
  Transmission Date: 20141002
  Serious: Yes (Hospitalization, Other)
  Sender: FDA-Public Use
  Company Number: US-BAYER-2011-040677

PATIENT
  Age: 29 Year
  Sex: Female
  Weight: 108.84 kg

DRUGS (9)
  1. YASMIN [Suspect]
     Indication: PREMENSTRUAL SYNDROME
     Dosage: UNK
     Dates: start: 200805, end: 2011
  2. YASMIN [Suspect]
     Indication: MENORRHAGIA
  3. YASMIN [Suspect]
     Indication: DYSMENORRHOEA
  4. OCELLA [Suspect]
     Indication: PREMENSTRUAL SYNDROME
     Dosage: UNK
     Dates: start: 200805, end: 2011
  5. OCELLA [Suspect]
     Indication: MENORRHAGIA
  6. OCELLA [Suspect]
     Indication: DYSMENORRHOEA
  7. MUPIROCIN [Concomitant]
     Dosage: 2 %, UNK
     Route: 061
     Dates: start: 20080922
  8. METFORMIN [Concomitant]
     Dosage: 500 MG, LONG TERM USE
     Route: 048
  9. SPIRONOLACTONE [Concomitant]
     Dosage: 100 MG, LONG TERM USE
     Route: 048

REACTIONS (14)
  - Gallbladder disorder [None]
  - Biliary dyskinesia [None]
  - Pain [None]
  - Abdominal pain [None]
  - Dyspepsia [None]
  - Eating disorder [None]
  - Abdominal distension [None]
  - Flatulence [None]
  - Dyspepsia [None]
  - Gastrointestinal motility disorder [None]
  - Diarrhoea [None]
  - Anxiety [None]
  - Depression [None]
  - Fear [None]
